FAERS Safety Report 9651160 (Version 1)
Quarter: 2013Q4

REPORT INFORMATION
  Report Type: Spontaneous
  Country: US (occurrence: None)
  Receive Date: 20131028
  Receipt Date: 20131028
  Transmission Date: 20140711
  Serious: Yes (Other)
  Sender: FDA-Public Use
  Company Number: None

PATIENT
  Age: 17 Year
  Sex: Male
  Weight: 11.02 kg

DRUGS (1)
  1. METHYLPHENIDATE ER [Suspect]
     Indication: ATTENTION DEFICIT/HYPERACTIVITY DISORDER
     Dosage: 2-36MG TAB, QAM, ORAL
     Route: 048
     Dates: start: 20131023, end: 20131024

REACTIONS (4)
  - Anxiety [None]
  - Depression [None]
  - Headache [None]
  - Malaise [None]
